FAERS Safety Report 4517676-0 (Version None)
Quarter: 2004Q4

REPORT INFORMATION
  Report Type: 
  Country: None (occurrence: None)
  Receive Date: 20041202
  Receipt Date: 20041202
  Transmission Date: 20050328
  Serious: Yes (Other)
  Sender: FDA-Public Use
  Company Number: None

PATIENT
  Age: 53 Year
  Sex: Female

DRUGS (1)
  1. CELEBREX [Suspect]
     Indication: PLANTAR FASCIITIS
     Dosage: 1 X 200MG  ORAL
     Route: 048
     Dates: start: 20041110

REACTIONS (2)
  - OROPHARYNGEAL SWELLING [None]
  - SWELLING FACE [None]
